FAERS Safety Report 19005148 (Version 7)
Quarter: 2021Q2

REPORT INFORMATION
  Report Type: Report from Study
  Country: HR (occurrence: HR)
  Receive Date: 20210312
  Receipt Date: 20210611
  Transmission Date: 20210717
  Serious: Yes (Hospitalization)
  Sender: FDA-Public Use
  Company Number: HR-EXELIXIS-XL18421038299

PATIENT
  Age: 63 Year
  Sex: Male
  Weight: 77 kg

DRUGS (8)
  1. BLINDED XL184 [Suspect]
     Active Substance: CABOZANTINIB
     Dosage: 100/40 MG
     Dates: start: 20210524
  2. BLINDED XL184 [Suspect]
     Active Substance: CABOZANTINIB
     Indication: MEDULLARY THYROID CANCER
     Dosage: 140 OR 60 MG QD
     Route: 048
     Dates: start: 20180528, end: 20210302
  3. BLINDED XL184 [Suspect]
     Active Substance: CABOZANTINIB
     Dosage: 100/40 MG
     Route: 048
     Dates: start: 20210406, end: 20210418
  4. BLINDED XL184 [Suspect]
     Active Substance: CABOZANTINIB
     Dosage: 100/40 MG
     Route: 048
     Dates: start: 20210406, end: 20210418
  5. EUTHYROX [Concomitant]
     Active Substance: LEVOTHYROXINE SODIUM
  6. SELDIAR [Concomitant]
  7. BLINDED XL184 [Suspect]
     Active Substance: CABOZANTINIB
     Indication: MEDULLARY THYROID CANCER
     Dosage: 140 OR 60 MG QD
     Route: 048
     Dates: start: 20180528, end: 20210302
  8. BLINDED XL184 [Suspect]
     Active Substance: CABOZANTINIB
     Dosage: 100/40 MG
     Dates: start: 20210524

REACTIONS (1)
  - Pelvic abscess [Recovered/Resolved]

NARRATIVE: CASE EVENT DATE: 20210303
